FAERS Safety Report 12292640 (Version 2)
Quarter: 2016Q2

REPORT INFORMATION
  Report Type: Spontaneous
  Country: JP (occurrence: JP)
  Receive Date: 20160421
  Receipt Date: 20160427
  Transmission Date: 20160815
  Serious: Yes (Hospitalization)
  Sender: FDA-Public Use
  Company Number: JP-ABBVIE-16P-087-1609980-00

PATIENT
  Age: 16 Year
  Sex: Female

DRUGS (5)
  1. PARACETAMOL [Suspect]
     Active Substance: ACETAMINOPHEN
     Indication: PYREXIA
     Route: 065
     Dates: start: 201309
  2. AMOXICILLIN/CLAVULANIC ACID [Suspect]
     Active Substance: AMOXICILLIN\CLAVULANIC ACID
     Indication: PYREXIA
     Route: 065
     Dates: start: 201309
  3. LEVOFLOXACIN. [Suspect]
     Active Substance: LEVOFLOXACIN
     Indication: PYREXIA
     Route: 065
     Dates: start: 201309
  4. CEFCAPENE PIVOXIL HYDROCHLORIDE [Suspect]
     Active Substance: CEFCAPENE PIVOXIL HYDROCHLORIDE
     Indication: PYREXIA
     Route: 065
     Dates: start: 201309
  5. VALPROATE SODIUM. [Suspect]
     Active Substance: VALPROATE SODIUM
     Indication: MIGRAINE
     Route: 065

REACTIONS (13)
  - Fatigue [Recovering/Resolving]
  - Heart rate increased [Recovering/Resolving]
  - C-reactive protein increased [Recovering/Resolving]
  - Renal impairment [Recovering/Resolving]
  - Visual acuity reduced [Recovering/Resolving]
  - Beta 2 microglobulin increased [Recovering/Resolving]
  - Iridocyclitis [Recovering/Resolving]
  - Blood creatinine increased [Recovering/Resolving]
  - Decreased appetite [Recovering/Resolving]
  - Beta-N-acetyl-D-glucosaminidase increased [Recovering/Resolving]
  - Renal disorder [Recovering/Resolving]
  - Ocular hyperaemia [Recovering/Resolving]
  - Tubulointerstitial nephritis and uveitis syndrome [Recovering/Resolving]
